FAERS Safety Report 9230362 (Version 4)
Quarter: 2013Q2

REPORT INFORMATION
  Report Type: Spontaneous
  Country: JP (occurrence: JP)
  Receive Date: 20130415
  Receipt Date: 20130527
  Transmission Date: 20140414
  Serious: Yes (Other)
  Sender: FDA-Public Use
  Company Number: JP-009507513-1304JPN005920

PATIENT
  Age: 69 Year
  Sex: Female
  Weight: 39 kg

DRUGS (8)
  1. PEGINTRON [Suspect]
     Indication: CHRONIC HEPATITIS C
     Dosage: 1.5 MICROGRAM PER KILOGRAM/WEEK
     Route: 058
     Dates: start: 20121025, end: 20130318
  2. REBETOL [Suspect]
     Indication: CHRONIC HEPATITIS C
     Dosage: 400 MG, QD
     Route: 048
     Dates: start: 20121025, end: 20130322
  3. TELAVIC [Suspect]
     Indication: CHRONIC HEPATITIS C
     Dosage: 1500MG/QD
     Route: 048
     Dates: start: 20130222, end: 20130322
  4. AZULFIDINE EN [Concomitant]
     Dosage: 500 MG, QD
     Route: 048
  5. GASPORT D [Concomitant]
     Dosage: 20 MG, QD
     Route: 048
  6. ZYRTEC [Concomitant]
     Indication: PROPHYLAXIS
     Dosage: 10 MG, QD
     Route: 048
     Dates: end: 20130226
  7. FEBURIC [Concomitant]
     Indication: PROPHYLAXIS
     Dosage: 40 MG, QD
     Route: 048
     Dates: start: 20130224
  8. XYZAL [Concomitant]
     Indication: PROPHYLAXIS
     Dosage: 5 MG, QD
     Route: 048
     Dates: start: 20130227, end: 20130401

REACTIONS (2)
  - Erythema multiforme [Recovered/Resolved]
  - Rash [Unknown]
